FAERS Safety Report 9855603 (Version 1)
Quarter: 2014Q1

REPORT INFORMATION
  Report Type: Spontaneous
  Country: JP (occurrence: JP)
  Receive Date: 20140130
  Receipt Date: 20140130
  Transmission Date: 20141002
  Serious: Yes (Other)
  Sender: FDA-Public Use
  Company Number: PHHY2014JP009077

PATIENT
  Age: 51 Year
  Sex: Female

DRUGS (1)
  1. OCTREOTIDE [Suspect]
     Indication: PANCREATIC NEUROENDOCRINE TUMOUR
     Route: 065

REACTIONS (7)
  - Ectopic ACTH syndrome [Unknown]
  - Neutrophil count decreased [Unknown]
  - Malaise [Unknown]
  - Oedema [Unknown]
  - Hypertension [Unknown]
  - Platelet count decreased [Unknown]
  - Infection [Unknown]
